FAERS Safety Report 5006448-9 (Version None)
Quarter: 2006Q2

REPORT INFORMATION
  Report Type: 
  Country: None (occurrence: None)
  Receive Date: 20060516
  Receipt Date: 20060502
  Transmission Date: 20061013
  Serious: Yes (Other)
  Sender: FDA-Public Use
  Company Number: 2006PV012531

PATIENT
  Sex: Female

DRUGS (4)
  1. SYMLIN [Suspect]
     Indication: DIABETES MELLITUS INSULIN-DEPENDENT
     Dosage: SEE IMAGE
     Route: 058
     Dates: start: 20051027, end: 20060418
  2. SYMLIN [Suspect]
     Indication: DIABETES MELLITUS INSULIN-DEPENDENT
     Dosage: SEE IMAGE
     Route: 058
     Dates: start: 20060401
  3. HUMALOG [Suspect]
     Dosage: 2 U; AC; SC
     Route: 058
  4. LANTUS [Suspect]
     Dosage: 15 U; QAM; SC
     Route: 058

REACTIONS (6)
  - BLOOD GLUCOSE INCREASED [None]
  - DRUG ADMINISTRATION ERROR [None]
  - GLYCOSYLATED HAEMOGLOBIN INCREASED [None]
  - HYPOGLYCAEMIA [None]
  - LOSS OF CONSCIOUSNESS [None]
  - UNRESPONSIVE TO VERBAL STIMULI [None]
